FAERS Safety Report 25814355 (Version 1)
Quarter: 2025Q3

REPORT INFORMATION
  Report Type: Report from Study
  Country: EU (occurrence: EU)
  Receive Date: 20250917
  Receipt Date: 20250917
  Transmission Date: 20251020
  Serious: Yes (Other)
  Sender: UCB
  Company Number: EU-UCBSA-2025056640

PATIENT

DRUGS (2)
  1. BIMEKIZUMAB [Suspect]
     Active Substance: BIMEKIZUMAB
     Indication: Hidradenitis
     Dosage: 320 MILLIGRAM, EV 2 WEEKS(QOW) UNTIL  WEEK 16, FOLLOWED BY 320 MG EVERY 4 WEEKS  THEREAFTER
     Route: 058
  2. BIMEKIZUMAB [Suspect]
     Active Substance: BIMEKIZUMAB
     Dosage: 320 MILLIGRAM, EV 4 WEEKS
     Route: 058

REACTIONS (17)
  - Crohn^s disease [Unknown]
  - Cholangitis acute [Unknown]
  - Mucocutaneous candidiasis [Unknown]
  - Eczema [Unknown]
  - Oral candidiasis [Unknown]
  - Eczema eyelids [Unknown]
  - Dermatitis psoriasiform [Unknown]
  - Vulvovaginal candidiasis [Unknown]
  - Angular cheilitis [Unknown]
  - Aphthous ulcer [Unknown]
  - Fatigue [Unknown]
  - Fibromyalgia [Unknown]
  - Diarrhoea [Unknown]
  - Psoriasis [Unknown]
  - Drug ineffective [Unknown]
  - Off label use [Unknown]
  - Adverse event [Unknown]
